FAERS Safety Report 8377804-6 (Version None)
Quarter: 2012Q2

REPORT INFORMATION
  Report Type: 
  Country: None (occurrence: None)
  Receive Date: 20120521
  Receipt Date: 20120512
  Transmission Date: 20120825
  Serious: Yes (Hospitalization, Other)
  Sender: FDA-Public Use
  Company Number: CL-412-2012

PATIENT
  Age: 68 Year
  Sex: Female
  Weight: 84 kg

DRUGS (19)
  1. PAROXETINE HCL [Concomitant]
  2. TRIAMTERENE AND HYDROCHLOROTHIAZIDE [Concomitant]
  3. OMEPRAZOLE [Concomitant]
  4. OXYCODONE HCL [Concomitant]
  5. FOSAMAX [Concomitant]
  6. FLUODRICORTISONE [Concomitant]
  7. TIAGABINE (GABITRIL) [Concomitant]
  8. FENTANYL-100 [Suspect]
     Dosage: 50 UG
  9. LIPITOR [Concomitant]
  10. MULTI-VITAMIN [Concomitant]
  11. LEVOTHYROXINE SODIUM [Concomitant]
  12. CYMBALTA [Concomitant]
  13. SENNA-MINT WAF [Concomitant]
  14. ONDANSETRON [Suspect]
     Dosage: 4MG
  15. LISINOPRIL [Concomitant]
  16. WELLBUTRIN [Concomitant]
  17. CLONAZEPAM [Concomitant]
  18. GABAPENTIN [Concomitant]
  19. CALCIUM [Concomitant]

REACTIONS (3)
  - SEROTONIN SYNDROME [None]
  - BLOOD PRESSURE DECREASED [None]
  - DRUG INTERACTION [None]
